FAERS Safety Report 10370432 (Version 1)
Quarter: 2014Q3

REPORT INFORMATION
  Report Type: Spontaneous
  Country: US (occurrence: None)
  Receive Date: 20140807
  Receipt Date: 20140807
  Transmission Date: 20150326
  Serious: No
  Sender: FDA-Public Use
  Company Number: None

PATIENT
  Age: 58 Year
  Sex: Male

DRUGS (6)
  1. VITAMIN D [Concomitant]
     Active Substance: CHOLECALCIFEROL
  2. SOVALDI [Suspect]
     Active Substance: SOFOSBUVIR
     Indication: HEPATITIS C
     Route: 048
     Dates: start: 20140127
  3. ASA [Concomitant]
     Active Substance: ASPIRIN
  4. IBUPROFEN. [Concomitant]
     Active Substance: IBUPROFEN
  5. RIBASPHERE RIBAPAK [Concomitant]
     Active Substance: RIBAVIRIN
  6. METOPROLOL/HCTZ [Concomitant]

REACTIONS (4)
  - Musculoskeletal stiffness [None]
  - Back pain [None]
  - Muscle spasms [None]
  - Neck pain [None]

NARRATIVE: CASE EVENT DATE: 20140805
